FAERS Safety Report 7422653-6 (Version None)
Quarter: 2011Q2

REPORT INFORMATION
  Report Type: 
  Country: None (occurrence: None)
  Receive Date: 20110419
  Receipt Date: 20110414
  Transmission Date: 20111010
  Serious: Yes (Hospitalization)
  Sender: FDA-Public Use
  Company Number: GB-EISAI INC-E2020-08703-SOL-GB

PATIENT
  Sex: Female

DRUGS (1)
  1. ARICEPT [Suspect]
     Indication: DEMENTIA
     Route: 048
     Dates: start: 20070101, end: 20110101

REACTIONS (3)
  - HEART RATE IRREGULAR [None]
  - HAEMATEMESIS [None]
  - HAEMOGLOBIN DECREASED [None]
